FAERS Safety Report 8240364-4 (Version None)
Quarter: 2012Q1

REPORT INFORMATION
  Report Type: 
  Country: None (occurrence: None)
  Receive Date: 20120328
  Receipt Date: 20120322
  Transmission Date: 20120608
  Serious: Yes (Other)
  Sender: FDA-Public Use
  Company Number: BR-PFIZER INC-2012075597

PATIENT
  Age: 51 Year
  Sex: Female
  Weight: 80 kg

DRUGS (4)
  1. LOSARTAN [Concomitant]
     Indication: HYPERTENSION
     Dosage: 50 MG DAILY
  2. ATENOLOL [Concomitant]
     Indication: HYPERTENSION
     Dosage: 50 MG DAILY
  3. LYRICA [Suspect]
     Indication: FIBROMYALGIA
     Dosage: 1 CAPSULE OF 75 MG, DAILY
     Route: 048
  4. AMYTRIL [Concomitant]
     Indication: FIBROMYALGIA
     Dosage: 25 MG AT NIGHT

REACTIONS (4)
  - MENORRHAGIA [None]
  - OEDEMA PERIPHERAL [None]
  - THROMBOSIS [None]
  - AMENORRHOEA [None]
